FAERS Safety Report 8586052-6 (Version None)
Quarter: 2012Q3

REPORT INFORMATION
  Report Type: 
  Country: None (occurrence: None)
  Receive Date: 20120810
  Receipt Date: 20120803
  Transmission Date: 20120928
  Serious: Yes (Hospitalization)
  Sender: FDA-Public Use
  Company Number: FR-MERCK-1208FRA003691

PATIENT

DRUGS (15)
  1. TAZOBACTAM [Suspect]
     Dosage: 4 G, TID
     Route: 042
     Dates: start: 20120709, end: 20120713
  2. TIENAM 500MG/500MG, POUDRE POUR PERFUSION [Suspect]
     Dosage: 500 MG, TID
     Route: 042
     Dates: start: 20120704, end: 20120707
  3. ACUPAN [Suspect]
     Dosage: UNK
     Route: 042
     Dates: start: 20120714, end: 20120724
  4. PLAVIX [Suspect]
     Dosage: 75 MG, QD
     Dates: start: 20120707, end: 20120723
  5. TAMSULOSIN HCL [Concomitant]
  6. NICOBION [Concomitant]
     Route: 048
  7. NOVORAPID [Concomitant]
     Dosage: UNK
     Route: 058
     Dates: start: 20120711
  8. OFLOXACIN [Suspect]
     Dosage: 200 MG, BID
     Dates: start: 20120709, end: 20120711
  9. LOVENOX [Concomitant]
     Route: 058
  10. ACETAMINOPHEN [Suspect]
     Dosage: 1 G, QD
     Route: 048
     Dates: start: 20120711, end: 20120717
  11. CIPROFLOXACIN HCL [Suspect]
     Dosage: 500 MG, BID
     Route: 042
     Dates: start: 20120713, end: 20120723
  12. TENORMIN [Suspect]
     Dosage: 100 MG, QD
     Route: 048
     Dates: start: 20120707, end: 20120711
  13. PANTOPRAZOLE SODIUM [Suspect]
     Dosage: 40 MG, UNK
     Route: 048
     Dates: start: 20120707, end: 20120711
  14. LASIX [Concomitant]
     Route: 048
  15. CORDARONE [Concomitant]
     Route: 048

REACTIONS (1)
  - LEUKOCYTOCLASTIC VASCULITIS [None]
